FAERS Safety Report 7246316-5 (Version None)
Quarter: 2011Q1

REPORT INFORMATION
  Report Type: 
  Country: None (occurrence: None)
  Receive Date: 20110126
  Receipt Date: 20101125
  Transmission Date: 20110831
  Serious: Yes (Other)
  Sender: FDA-Public Use
  Company Number: PHHY2010DE82429

PATIENT
  Sex: Female
  Weight: 69 kg

DRUGS (14)
  1. FORMOTEROL FUMARATE [Concomitant]
     Dosage: TWICE DAILY
  2. NITRANGIN [Concomitant]
  3. IBUPROFEN [Concomitant]
     Dosage: 600, UNK
  4. DIOVAN TRIPLE [Suspect]
     Indication: HYPERTENSION
     Dosage: 10/160/12.5 MG,
     Route: 048
     Dates: start: 20100727
  5. TORSEMIDE [Concomitant]
     Dosage: 20 MG, HALF TABET, UNK
  6. DICLAC [Concomitant]
     Dosage: 75 , UNK
  7. BERODUAL [Concomitant]
  8. OMEPRAZOLE [Concomitant]
     Dosage: 20 MG, UNK
  9. ENALAPRIL MALEATE [Concomitant]
  10. ALLOPURINOL [Concomitant]
     Dosage: HALF DAILY
  11. MOXONIDINE [Concomitant]
     Dosage: ONE TABLET, DAILY
  12. SERETIDE [Concomitant]
     Dosage: 50 MCG/500 MCG
  13. DIOVAN TRIPLE [Suspect]
     Dosage: 10/320/25 MG
  14. SIMVASTATIN [Concomitant]
     Dosage: HALF DAILY

REACTIONS (1)
  - RENAL FAILURE [None]
